FAERS Safety Report 5735364-X (Version None)
Quarter: 2008Q2

REPORT INFORMATION
  Report Type: 
  Country: None (occurrence: None)
  Receive Date: 20080508
  Receipt Date: 20080508
  Transmission Date: 20081010
  Serious: No
  Sender: FDA-Public Use
  Company Number: None

PATIENT
  Age: 47 Year
  Sex: Female
  Weight: 54.4316 kg

DRUGS (1)
  1. CRESTPRO HEALTH   PROCTER AND GAMBLE [Suspect]
     Indication: DENTAL DISORDER PROPHYLAXIS
     Dosage: 20 ML -4- TEASPOONS 2X A DAY DENTAL
     Route: 004
     Dates: start: 20080301, end: 20080506

REACTIONS (1)
  - TOOTH DISCOLOURATION [None]
